FAERS Safety Report 6003921-1 (Version None)
Quarter: 2008Q4

REPORT INFORMATION
  Report Type: 
  Country: None (occurrence: None)
  Receive Date: 20081216
  Receipt Date: 20081208
  Transmission Date: 20090506
  Serious: Yes (Other)
  Sender: FDA-Public Use
  Company Number: US-ASTRAZENECA-2008UW27282

PATIENT
  Age: 63 Year
  Sex: Female
  Weight: 90.7 kg

DRUGS (8)
  1. ARIMIDEX [Suspect]
     Indication: BREAST CANCER
     Route: 048
     Dates: start: 20050101
  2. ALEGRA [Concomitant]
  3. FLONASE [Concomitant]
  4. ALBUTEROL [Concomitant]
  5. VICODIN [Concomitant]
  6. PROZAC [Concomitant]
  7. BELLAMINE [Concomitant]
  8. DONNATAL [Concomitant]

REACTIONS (6)
  - ALOPECIA [None]
  - DEPRESSED MOOD [None]
  - HOT FLUSH [None]
  - INSOMNIA [None]
  - KNEE OPERATION [None]
  - WEIGHT INCREASED [None]
